FAERS Safety Report 24353913 (Version 1)
Quarter: 2024Q3

REPORT INFORMATION
  Report Type: Spontaneous
  Country: US (occurrence: US)
  Receive Date: 20240923
  Receipt Date: 20240923
  Transmission Date: 20241017
  Serious: No
  Sender: PAREXEL
  Company Number: US-STEMLINE THERAPEUTICS, INC-2024-STML-US004309

PATIENT

DRUGS (1)
  1. ORSERDU [Suspect]
     Active Substance: ELACESTRANT
     Indication: Product used for unknown indication
     Dosage: 345 MG, UNK
     Route: 065

REACTIONS (2)
  - Product physical issue [Unknown]
  - No adverse event [Unknown]
